FAERS Safety Report 9169325 (Version 6)
Quarter: 2013Q3

REPORT INFORMATION
  Report Type: Spontaneous
  Country: US (occurrence: US)
  Receive Date: 20130318
  Receipt Date: 20130930
  Transmission Date: 20140515
  Serious: Yes (Hospitalization)
  Sender: FDA-Public Use
  Company Number: US-B.I. PHARMACEUTICALS,INC./RIDGEFIELD-2013-BI-06709BP

PATIENT
  Age: 88 Year
  Sex: Male
  Weight: 97.07 kg

DRUGS (11)
  1. PRADAXA [Suspect]
     Indication: ANTICOAGULANT THERAPY
     Dosage: 300 MG
     Route: 048
     Dates: start: 20110207, end: 20110406
  2. PRADAXA [Suspect]
     Indication: ATRIAL FIBRILLATION
  3. BISACODYL [Concomitant]
  4. CRESTOR [Concomitant]
     Indication: BLOOD CHOLESTEROL
     Dosage: 40 MG
     Route: 048
  5. PRILOSEC EC [Concomitant]
     Indication: GASTRIC DISORDER
     Dosage: 40 MG
     Route: 048
  6. LASIX [Concomitant]
     Indication: DIURETIC THERAPY
     Dosage: 20 MG
     Route: 048
  7. COREG [Concomitant]
     Indication: CARDIAC DISORDER
     Dosage: 25 MG
     Route: 048
  8. NITROSTAT [Concomitant]
     Indication: CHEST PAIN
     Route: 060
  9. LISINOPRIL [Concomitant]
     Indication: HYPERTENSION
     Dosage: 10 MG
     Route: 048
  10. VITAMIN D [Concomitant]
  11. ATROVENT MDI [Concomitant]

REACTIONS (4)
  - Gastrointestinal haemorrhage [Unknown]
  - Rectal haemorrhage [Unknown]
  - Haemorrhagic anaemia [Unknown]
  - Renal failure [Recovered/Resolved]
